FAERS Safety Report 9302095 (Version 2)
Quarter: 2013Q4

REPORT INFORMATION
  Report Type: Spontaneous
  Country: US (occurrence: US)
  Receive Date: 20130521
  Receipt Date: 20131107
  Transmission Date: 20140711
  Serious: Yes (Hospitalization)
  Sender: FDA-Public Use
  Company Number: US-B.I. PHARMACEUTICALS,INC./RIDGEFIELD-2013-BI-13956BP

PATIENT
  Age: 74 Year
  Sex: Male
  Weight: 90.72 kg

DRUGS (13)
  1. PRADAXA [Suspect]
     Indication: ANTICOAGULANT THERAPY
     Dosage: 300 MG
     Dates: start: 20120112, end: 20130119
  2. PRADAXA [Suspect]
     Indication: ATRIAL FIBRILLATION
  3. DICLOFENAC [Concomitant]
     Indication: ARTHRITIS
     Dosage: 150 MG
     Dates: end: 20130119
  4. CHEMOTHERAPY [Concomitant]
     Indication: PANCREATIC CARCINOMA
  5. NORVASC [Concomitant]
     Dosage: 2.5 MG
  6. ZEBETA [Concomitant]
     Dosage: 5 MG
  7. LEXAPRO [Concomitant]
     Dosage: 10 MG
  8. ATIVAN [Concomitant]
     Dosage: 2 MG
  9. MULTIVITAMIN [Concomitant]
  10. PANCRELIPASE [Concomitant]
  11. COMPAZINE [Concomitant]
  12. ZOCOR [Concomitant]
     Indication: HYPERCHOLESTEROLAEMIA
     Dosage: 10 MG
  13. UROXATRAL [Concomitant]
     Dosage: 10 MG

REACTIONS (3)
  - Gastrointestinal haemorrhage [Unknown]
  - Renal failure acute [Recovered/Resolved]
  - Anaemia [Unknown]
